FAERS Safety Report 22156868 (Version 3)
Quarter: 2023Q2

REPORT INFORMATION
  Report Type: Spontaneous
  Country: BR (occurrence: BR)
  Receive Date: 20230330
  Receipt Date: 20230621
  Transmission Date: 20230721
  Serious: Yes (Hospitalization, Other)
  Sender: FDA-Public Use
  Company Number: BR-SA-SAC20230324000890

PATIENT

DRUGS (3)
  1. LARONIDASE [Suspect]
     Active Substance: LARONIDASE
     Indication: Mucopolysaccharidosis I
     Dosage: UNK UNK, QW
     Route: 041
     Dates: start: 20221024, end: 20230405
  2. LARONIDASE [Suspect]
     Active Substance: LARONIDASE
     Dosage: UNK UNK, QW
     Route: 041
     Dates: start: 2023
  3. CARVEDILOL [Concomitant]
     Active Substance: CARVEDILOL
     Indication: Product used for unknown indication

REACTIONS (3)
  - Hydrocephalus [Recovering/Resolving]
  - Bacterial infection [Recovering/Resolving]
  - Gait inability [Recovering/Resolving]

NARRATIVE: CASE EVENT DATE: 20221201
